FAERS Safety Report 9475179 (Version 1)
Quarter: 2013Q3

REPORT INFORMATION
  Report Type: Report from Study
  Country: US (occurrence: US)
  Receive Date: 20130824
  Receipt Date: 20130824
  Transmission Date: 20140515
  Serious: Yes (Hospitalization)
  Sender: FDA-Public Use
  Company Number: GXBR2013US001581

PATIENT
  Age: 55 Year
  Sex: Female
  Weight: 58.5 kg

DRUGS (3)
  1. ENOXAPARIN SODIUM [Suspect]
     Indication: DEEP VEIN THROMBOSIS
     Dosage: 90 MG, QD
     Route: 058
     Dates: start: 201305
  2. VICODIN [Concomitant]
     Indication: PAIN
     Dosage: 5MG HYDROCODONE/325MG ACETAMINOPHEN (1/2 TAB), PRN
     Route: 048
  3. ATIVAN [Concomitant]
     Indication: ANXIETY
     Dosage: 0.25 MG, Q6H
     Route: 048
     Dates: end: 201308

REACTIONS (1)
  - Dizziness [Not Recovered/Not Resolved]
